FAERS Safety Report 8135031-1 (Version None)
Quarter: 2012Q1

REPORT INFORMATION
  Report Type: 
  Country: None (occurrence: None)
  Receive Date: 20120214
  Receipt Date: 20120207
  Transmission Date: 20120608
  Serious: Yes (Other)
  Sender: FDA-Public Use
  Company Number: BR-PFIZER INC-2012033951

PATIENT
  Sex: Female

DRUGS (9)
  1. CAPTOPRIL [Concomitant]
     Indication: HYPERTENSION
     Dosage: UNK
     Dates: start: 20070101, end: 20100101
  2. AMLODIPINE MALEATE [Concomitant]
     Indication: HYPERTENSION
     Dosage: UNK
     Dates: start: 20100101
  3. TIMOLOL [Suspect]
     Indication: GLAUCOMA
     Dosage: UNK
     Dates: start: 20110101
  4. LUMIGAN [Suspect]
     Indication: GLAUCOMA
     Dosage: UNK
     Dates: start: 20110101
  5. BENERVA [Concomitant]
     Indication: VARICOSE VEIN
     Dosage: UNK
     Dates: start: 20110801, end: 20120206
  6. GINKGO BILOBA [Concomitant]
     Indication: MEMORY IMPAIRMENT
     Dosage: UNK
     Dates: start: 19980101
  7. XALATAN [Suspect]
     Indication: GLAUCOMA
     Dosage: 3 UG (TWO DROPS), DAILY
     Route: 047
     Dates: start: 20080101, end: 20110101
  8. COMBIGAN [Suspect]
     Indication: GLAUCOMA
     Dosage: UNK
     Dates: start: 20110101
  9. METFORMIN [Concomitant]
     Indication: DIABETES MELLITUS
     Dosage: UNK
     Dates: start: 20050101

REACTIONS (5)
  - EYE PRURITUS [None]
  - GASTRITIS [None]
  - INTRAOCULAR PRESSURE INCREASED [None]
  - DARK CIRCLES UNDER EYES [None]
  - HELICOBACTER INFECTION [None]
